FAERS Safety Report 5809516-4 (Version None)
Quarter: 2008Q3

REPORT INFORMATION
  Report Type: 
  Country: None (occurrence: None)
  Receive Date: 20080715
  Receipt Date: 20080710
  Transmission Date: 20090109
  Serious: Yes (Disabling)
  Sender: FDA-Public Use
  Company Number: CH-BAYER-200820072GPV

PATIENT
  Age: 52 Year
  Sex: Female
  Weight: 58 kg

DRUGS (6)
  1. BETAFERON [Suspect]
     Indication: MULTIPLE SCLEROSIS
     Route: 058
     Dates: start: 19950101
  2. BETAFERON [Suspect]
     Dates: start: 20080101
  3. PANTOPRAZOLE SODIUM [Concomitant]
     Indication: DRUG USE FOR UNKNOWN INDICATION
  4. SIMCORA [Concomitant]
     Indication: DRUG USE FOR UNKNOWN INDICATION
  5. CONCOR PLUS [Concomitant]
     Indication: DRUG USE FOR UNKNOWN INDICATION
  6. ZOMIG ORO [Concomitant]
     Indication: DRUG USE FOR UNKNOWN INDICATION

REACTIONS (4)
  - CHILLS [None]
  - INFLUENZA LIKE ILLNESS [None]
  - RASH [None]
  - RASH MACULAR [None]
